FAERS Safety Report 5182949-8 (Version None)
Quarter: 2006Q4

REPORT INFORMATION
  Report Type: 
  Country: None (occurrence: None)
  Receive Date: 20061220
  Receipt Date: 20061020
  Transmission Date: 20070319
  Serious: Yes (Hospitalization, Other)
  Sender: FDA-Public Use
  Company Number: JP-NOVOPROD-257938

PATIENT
  Age: 41 Year
  Sex: Female

DRUGS (9)
  1. NOVORAPID CHU PENFILL [Suspect]
     Indication: DIABETES MELLITUS INSULIN-DEPENDENT
     Dosage: 20 U, QD
     Route: 058
     Dates: start: 20040324
  2. LANTUS [Suspect]
     Indication: DIABETES MELLITUS INSULIN-DEPENDENT
     Dosage: 24 IU, QD
     Route: 058
     Dates: start: 20050720
  3. MERCAZOLE [Concomitant]
     Indication: HYPERTHYROIDISM
     Dosage: 5 MG, QD
     Route: 048
     Dates: start: 19940101
  4. OMEPRAL [Concomitant]
     Indication: REFLUX OESOPHAGITIS
     Dosage: 20 MG, QD
     Route: 048
     Dates: start: 20040726
  5. ETIZOLAM [Concomitant]
     Indication: DEPRESSION
     Dosage: 1.5 MG, QD
     Dates: start: 20051017
  6. ROHYPNOL [Concomitant]
     Indication: DEPRESSION
     Dosage: 3 MG, QD
     Route: 048
     Dates: start: 20051017
  7. HALCION [Concomitant]
     Indication: DEPRESSION
     Dosage: .5 MG, QD
     Route: 048
     Dates: start: 20051017
  8. LUVOX [Concomitant]
     Dosage: 150 MG, QD
     Route: 048
     Dates: start: 20051017
  9. TETRAMIDE [Concomitant]
     Indication: DEPRESSION
     Dosage: 4 MG, QD
     Route: 048
     Dates: start: 20051214

REACTIONS (6)
  - CEREBRAL ATROPHY [None]
  - HYPOAESTHESIA [None]
  - HYPOGLYCAEMIA [None]
  - MEMORY IMPAIRMENT [None]
  - PARALYSIS FLACCID [None]
  - SOMNOLENCE [None]
